FAERS Safety Report 6829024 (Version 2)
Quarter: 2012Q4

REPORT INFORMATION
  Report Type: Report from Study
  Country: DE (occurrence: JP)
  Receive Date: 20081202
  Receipt Date: 20121220
  Transmission Date: 20130627
  Serious: No
  Sender: FDA-Public Use
  Company Number: JP-BRISTOL-MYERS SQUIBB COMPANY-14421341

PATIENT
  Age: 71 Year
  Sex: Male
  Weight: 61 kg

DRUGS (2)
  1. ERBITUX SOLN FOR INF 5MG/ML [Suspect]
     Indication: COLON CANCER
     Dosage: 4-4Nv8-668,19-19N=417,28-28N,9-9D,17-31M9=418;26-26D,27J-10M=415;7A-7Jl9,21Jl-28Ag=420MG/M2;
     Route: 041
     Dates: start: 20081104, end: 20090925
  2. IRINOTECAN HCL [Suspect]
     Indication: COLON CANCER
     Dosage: 200mg/m2:04n-09jan9,14-14apr,16jun-04ag9:180mg/m2=10-10fb,160=8my-2jun.
     Route: 041
     Dates: start: 20081104

REACTIONS (1)
  - Haemoglobin decreased [Not Recovered/Not Resolved]
